FAERS Safety Report 25153342 (Version 4)
Quarter: 2025Q2

REPORT INFORMATION
  Report Type: Report from Study
  Country: US (occurrence: US)
  Receive Date: 20250403
  Receipt Date: 20250630
  Transmission Date: 20250716
  Serious: Yes (Other)
  Sender: JAZZ
  Company Number: US-JAZZ PHARMACEUTICALS-2025-US-008527

PATIENT
  Sex: Female

DRUGS (4)
  1. EPIDIOLEX [Suspect]
     Active Substance: CANNABIDIOL
     Indication: Lennox-Gastaut syndrome
     Route: 048
     Dates: start: 202502
  2. EPIDIOLEX [Suspect]
     Active Substance: CANNABIDIOL
     Dosage: 4 MILLILITER, BID
  3. EPIDIOLEX [Suspect]
     Active Substance: CANNABIDIOL
     Dosage: 4 MILLILITER, BID
     Route: 048
     Dates: start: 20250310
  4. EPIDIOLEX [Suspect]
     Active Substance: CANNABIDIOL
     Dosage: 8.82 MILLIGRAM/KILOGRAM, BID
     Route: 048
     Dates: start: 20250317

REACTIONS (4)
  - Syncope [Recovering/Resolving]
  - Seizure [Recovering/Resolving]
  - Somnolence [Recovering/Resolving]
  - Drug ineffective [Not Recovered/Not Resolved]
